FAERS Safety Report 6144508-X (Version None)
Quarter: 2009Q2

REPORT INFORMATION
  Report Type: 
  Country: None (occurrence: None)
  Receive Date: 20090401
  Receipt Date: 20081231
  Transmission Date: 20091009
  Serious: Yes (Life-Threatening, Disabling)
  Sender: FDA-Public Use
  Company Number: 183290USA

PATIENT
  Age: 52 Year
  Sex: Male
  Weight: 106.1417 kg

DRUGS (12)
  1. LAMOTRIGINE [Suspect]
     Indication: DEPRESSION
     Dosage: 300 MG (150 MG, 2 IN 1 D), ORAL
     Route: 048
     Dates: start: 20081110, end: 20081213
  2. ZALEPLON [Concomitant]
  3. TESTOSTERONE [Concomitant]
  4. LEVOTHYROXINE SODIUM [Concomitant]
  5. MODAFINIL [Concomitant]
  6. LEVETIRACETAM [Concomitant]
  7. CLONAZEPAM [Concomitant]
  8. ESCITALOPRAM OXALATE [Concomitant]
  9. MONTELUKAST [Concomitant]
  10. CYCLOBENZAPRINE [Concomitant]
  11. RIZATRIPTAN BENZOATE [Concomitant]
  12. FIORINAL-C 1/4 [Concomitant]

REACTIONS (4)
  - DEPRESSION [None]
  - DRUG WITHDRAWAL SYNDROME [None]
  - GAIT DISTURBANCE [None]
  - SOMNOLENCE [None]
